FAERS Safety Report 6433159-5 (Version None)
Quarter: 2009Q4

REPORT INFORMATION
  Report Type: 
  Country: None (occurrence: None)
  Receive Date: 20091105
  Receipt Date: 20091029
  Transmission Date: 20100525
  Serious: Yes (Hospitalization)
  Sender: FDA-Public Use
  Company Number: 2009AL006944

PATIENT
  Age: 13 Year
  Sex: Female

DRUGS (2)
  1. LIDOCAINE HYDROCHLORIDE 2% [Suspect]
     Indication: LOCAL ANAESTHESIA
     Dosage: 2.2 ML;X1;DEN
     Dates: start: 20061023, end: 20061023
  2. ADRENALINE [Concomitant]

REACTIONS (1)
  - TYPE I HYPERSENSITIVITY [None]
